FAERS Safety Report 16233439 (Version 1)
Quarter: 2019Q2

REPORT INFORMATION
  Report Type: Spontaneous
  Country: US (occurrence: US)
  Receive Date: 20190424
  Receipt Date: 20190424
  Transmission Date: 20190711
  Serious: No
  Sender: FDA-Public Use
  Company Number: US-ASTRAZENECA-2019SE48598

PATIENT
  Age: 614 Month
  Sex: Female
  Weight: 74.4 kg

DRUGS (2)
  1. METFORMIN [Concomitant]
     Active Substance: METFORMIN HYDROCHLORIDE
     Indication: TYPE 2 DIABETES MELLITUS
     Route: 048
     Dates: start: 201810
  2. FARXIGA [Suspect]
     Active Substance: DAPAGLIFLOZIN PROPANEDIOL
     Indication: TYPE 2 DIABETES MELLITUS
     Route: 048
     Dates: start: 201812

REACTIONS (7)
  - Vomiting [Recovered/Resolved]
  - Hypotension [Unknown]
  - Nausea [Recovered/Resolved]
  - Pollakiuria [Not Recovered/Not Resolved]
  - Asthenia [Unknown]
  - Weight decreased [Unknown]
  - Intentional product misuse [Unknown]

NARRATIVE: CASE EVENT DATE: 201812
